FAERS Safety Report 5945255-7 (Version None)
Quarter: 2008Q4

REPORT INFORMATION
  Report Type: 
  Country: None (occurrence: None)
  Receive Date: 20081107
  Receipt Date: 20081031
  Transmission Date: 20090506
  Serious: Yes (Hospitalization)
  Sender: FDA-Public Use
  Company Number: NL-TEVA-179922ISR

PATIENT
  Age: 74 Year
  Sex: Female

DRUGS (9)
  1. METHOTREXATE [Suspect]
     Indication: RHEUMATOID ARTHRITIS
  2. FOLIC ACID [Concomitant]
  3. OMEPRAZOLE [Concomitant]
  4. CODEINE W/PARACETAMOL [Concomitant]
  5. CALCIUM W/VITAMIN D NOS [Concomitant]
     Dosage: 500MG/DAY-400MG /DAY
  6. RISEDRONIC ACID [Concomitant]
  7. NABUMETONE [Concomitant]
  8. ACENOCOUMAROL [Concomitant]
  9. ATORVASTATIN CALCIUM [Concomitant]

REACTIONS (1)
  - OSTEOARTHROPATHY [None]
